FAERS Safety Report 24291722 (Version 1)
Quarter: 2024Q3

REPORT INFORMATION
  Report Type: Spontaneous
  Country: CN (occurrence: CN)
  Receive Date: 20240906
  Receipt Date: 20240906
  Transmission Date: 20241016
  Serious: Yes (Life-Threatening, Other)
  Sender: PFIZER
  Company Number: CN-PFIZER INC-PV202400114062

PATIENT
  Age: 69 Year
  Sex: Male

DRUGS (5)
  1. DIFLUCAN [Interacting]
     Active Substance: FLUCONAZOLE
     Indication: Therapeutic procedure
     Dosage: 200 MG, 1X/DAY
     Route: 048
     Dates: start: 20240726, end: 20240802
  2. IMATINIB MESYLATE [Interacting]
     Active Substance: IMATINIB MESYLATE
     Indication: Therapeutic procedure
     Dosage: 0.2 G, 1X/DAY
     Route: 048
     Dates: start: 20240718, end: 20240723
  3. IMATINIB MESYLATE [Interacting]
     Active Substance: IMATINIB MESYLATE
     Dosage: 0.3 G, 1X/DAY
     Route: 048
     Dates: start: 20240724, end: 20240729
  4. IMATINIB MESYLATE [Interacting]
     Active Substance: IMATINIB MESYLATE
     Dosage: 0.3 G, 1X/DAY
     Route: 048
     Dates: start: 20240730, end: 20240805
  5. IMATINIB MESYLATE [Interacting]
     Active Substance: IMATINIB MESYLATE
     Dosage: 0.2 G, 1X/DAY
     Route: 048
     Dates: start: 20240806, end: 20240809

REACTIONS (2)
  - Platelet count decreased [Recovered/Resolved]
  - Drug interaction [Unknown]

NARRATIVE: CASE EVENT DATE: 20240726
